FAERS Safety Report 7379943-5 (Version None)
Quarter: 2011Q1

REPORT INFORMATION
  Report Type: 
  Country: None (occurrence: None)
  Receive Date: 20110329
  Receipt Date: 20110322
  Transmission Date: 20110831
  Serious: Yes (Other)
  Sender: FDA-Public Use
  Company Number: PHHY2011US11179

PATIENT
  Sex: Female

DRUGS (1)
  1. INTERFERON BETA-1B [Suspect]
     Indication: RELAPSING-REMITTING MULTIPLE SCLEROSIS
     Dosage: 8 MIU, QOD
     Dates: start: 19940623

REACTIONS (15)
  - LOW DENSITY LIPOPROTEIN INCREASED [None]
  - INJECTION SITE ERYTHEMA [None]
  - PHOTODERMATOSIS [None]
  - ACTINIC ELASTOSIS [None]
  - PRURITUS [None]
  - CUTANEOUS LUPUS ERYTHEMATOSUS [None]
  - RASH [None]
  - MILIA [None]
  - INJECTION SITE MASS [None]
  - INJECTION SITE PAIN [None]
  - INJECTION SITE SWELLING [None]
  - BLOOD CHOLESTEROL INCREASED [None]
  - SKIN FIBROSIS [None]
  - INFLAMMATION [None]
  - OPTIC NERVE DISORDER [None]
